FAERS Safety Report 5190824-8 (Version None)
Quarter: 2006Q4

REPORT INFORMATION
  Report Type: 
  Country: None (occurrence: None)
  Receive Date: 20061222
  Receipt Date: 20060830
  Transmission Date: 20070319
  Serious: Yes (Hospitalization, Other)
  Sender: FDA-Public Use
  Company Number: CA-ELI_LILLY_AND_COMPANY-CA200608006950

PATIENT
  Age: 76 Year
  Sex: Female
  Weight: 69.387 kg

DRUGS (12)
  1. FORTEO [Suspect]
     Indication: OSTEOPOROSIS
     Dosage: 20 UG, DAILY (1/D)
     Dates: start: 20050414, end: 20060811
  2. LOSEC [Concomitant]
  3. HYDROCHLOROTHIAZIDE [Concomitant]
  4. ALTACE [Concomitant]
  5. TYLENOL W/ CODEINE NO. 3 [Concomitant]
  6. PREMARIN [Concomitant]
  7. COLACE [Concomitant]
  8. ASCORBIC ACID [Concomitant]
  9. VITAMIN E [Concomitant]
  10. IRON [Concomitant]
  11. CALCIUM [Concomitant]
  12. GLUCOSAMINE [Concomitant]

REACTIONS (14)
  - ALOPECIA [None]
  - BODY TEMPERATURE INCREASED [None]
  - BONE GRAFT [None]
  - DIABETES MELLITUS [None]
  - FEMUR FRACTURE [None]
  - FLUSHING [None]
  - HEADACHE [None]
  - INFLUENZA LIKE ILLNESS [None]
  - MALAISE [None]
  - NASAL CONGESTION [None]
  - NAUSEA [None]
  - PAIN [None]
  - PATHOLOGICAL FRACTURE [None]
  - SOMNOLENCE [None]
